FAERS Safety Report 8440213-5 (Version None)
Quarter: 2012Q2

REPORT INFORMATION
  Report Type: 
  Country: None (occurrence: None)
  Receive Date: 20120615
  Receipt Date: 20120612
  Transmission Date: 20120825
  Serious: No
  Sender: FDA-Public Use
  Company Number: US-PFIZER INC-2012141669

PATIENT
  Sex: Female
  Weight: 63.039 kg

DRUGS (4)
  1. LASIX [Concomitant]
     Dosage: UNK
  2. GABAPENTIN [Suspect]
     Indication: NEUROPATHY PERIPHERAL
     Dosage: 300 MG, 1X/DAY
     Route: 048
     Dates: start: 20120217, end: 20120201
  3. GABAPENTIN [Suspect]
     Dosage: 300 MG, 2X/DAY
     Route: 048
     Dates: start: 20120201, end: 20120229
  4. TAXOL [Concomitant]
     Indication: NEOPLASM MALIGNANT
     Dosage: UNK
     Dates: end: 20110101

REACTIONS (2)
  - DRUG INEFFECTIVE [None]
  - NEUROPATHY PERIPHERAL [None]
